FAERS Safety Report 9574980 (Version 2)
Quarter: 2014Q1

REPORT INFORMATION
  Report Type: Spontaneous
  Country: GB (occurrence: GB)
  Receive Date: 20131001
  Receipt Date: 20140123
  Transmission Date: 20141002
  Serious: Yes (Death, Other)
  Sender: FDA-Public Use
  Company Number: PHHY2013GB106206

PATIENT
  Age: 80 Year
  Sex: Female

DRUGS (10)
  1. ALENDRONATE [Suspect]
     Indication: OSTEOPOROSIS
     Dosage: 70 MG, QW
     Route: 048
     Dates: start: 20040225, end: 20120329
  2. OMEPRAZOLE [Concomitant]
  3. AMLODIPINE [Concomitant]
  4. ASPIRIN [Concomitant]
  5. DIGOXIN [Concomitant]
  6. LISINOPRIL [Concomitant]
  7. ADCAL-D3 [Concomitant]
  8. FERROUS FUMARATE [Concomitant]
  9. SIMVASTATIN [Concomitant]
  10. PREGABALIN [Concomitant]

REACTIONS (1)
  - Oesophageal carcinoma [Fatal]
